FAERS Safety Report 4786369-7 (Version None)
Quarter: 2005Q3

REPORT INFORMATION
  Report Type: 
  Country: None (occurrence: None)
  Receive Date: 20050914
  Receipt Date: 20050216
  Transmission Date: 20060218
  Serious: Yes (Hospitalization)
  Sender: FDA-Public Use
  Company Number: 163-20785-05020280

PATIENT
  Age: 61 Year
  Sex: Female

DRUGS (3)
  1. THALOMID [Suspect]
     Indication: RHEUMATOID ARTHRITIS
     Dosage: 50 MG, DAILY, ORAL
     Route: 048
     Dates: start: 20041101, end: 20041202
  2. PLAQUENIL [Concomitant]
  3. PREDNISONE [Concomitant]

REACTIONS (2)
  - CONDITION AGGRAVATED [None]
  - PNEUMONIA [None]
